FAERS Safety Report 11891395 (Version 1)
Quarter: 2016Q1

REPORT INFORMATION
  Report Type: Report from Study
  Country: US (occurrence: US)
  Receive Date: 20160106
  Receipt Date: 20160106
  Transmission Date: 20160526
  Serious: No
  Sender: FDA-Public Use
  Company Number: US-009507513-1512USA012388

PATIENT

DRUGS (1)
  1. RIBAVIRIN. [Suspect]
     Active Substance: RIBAVIRIN
     Indication: HEPATITIS C
     Dosage: 1000 OR 1200 MG, BID (TWICE DAILY)
     Route: 048

REACTIONS (2)
  - Abdominal pain [Unknown]
  - Feeling hot [Unknown]
